FAERS Safety Report 10098375 (Version 2)
Quarter: 2014Q2

REPORT INFORMATION
  Report Type: Spontaneous
  Country: DE (occurrence: None)
  Receive Date: 20140421
  Receipt Date: 20140428
  Transmission Date: 20141212
  Serious: Yes (Death, Other)
  Sender: FDA-Public Use
  Company Number: DE-JNJFOC-20140410958

PATIENT
  Sex: 0

DRUGS (2)
  1. DACOGEN (DECITABINE) LYOPHILIZED POWDER [Suspect]
     Indication: ACUTE MYELOID LEUKAEMIA
     Dosage: 20 MG/M2, 1 IN 4 WEEK, INTRAVENOUS
     Route: 042
  2. DACOGEN (DECITABINE) LYOPHILIZED POWDER [Suspect]
     Indication: MYELODYSPLASTIC SYNDROME
     Dosage: 20 MG/M2, 1 IN 4 WEEK, INTRAVENOUS
     Route: 042

REACTIONS (3)
  - Neutropenia [None]
  - Colitis [None]
  - Toxicity to various agents [None]
